FAERS Safety Report 7361475-1 (Version None)
Quarter: 2011Q1

REPORT INFORMATION
  Report Type: 
  Country: None (occurrence: None)
  Receive Date: 20110318
  Receipt Date: 20110309
  Transmission Date: 20110831
  Serious: No
  Sender: FDA-Public Use
  Company Number: US-JNJFOC-20110305215

PATIENT
  Sex: Male

DRUGS (2)
  1. INVEGA SUSTENNA [Suspect]
     Indication: PRODUCT USED FOR UNKNOWN INDICATION
     Route: 030
  2. INVEGA SUSTENNA [Suspect]
     Route: 030

REACTIONS (2)
  - UNDERDOSE [None]
  - PARANOIA [None]
